FAERS Safety Report 8552763-1 (Version None)
Quarter: 2012Q3

REPORT INFORMATION
  Report Type: 
  Country: None (occurrence: None)
  Receive Date: 20120731
  Receipt Date: 20120725
  Transmission Date: 20120928
  Serious: Yes (Other)
  Sender: FDA-Public Use
  Company Number: PHHY2012MX065278

PATIENT
  Age: 47 Year
  Sex: Male

DRUGS (2)
  1. EXFORGE [Suspect]
     Dosage: UNK
  2. EXFORGE HCT [Suspect]
     Indication: HYPERTENSION
     Dosage: 1 TABLET DAILY
     Dates: start: 20120101

REACTIONS (4)
  - RENAL INJURY [None]
  - BLOOD URIC ACID INCREASED [None]
  - FEELING HOT [None]
  - BLOOD PRESSURE INCREASED [None]
